FAERS Safety Report 5140403-3 (Version None)
Quarter: 2006Q4

REPORT INFORMATION
  Report Type: 
  Country: None (occurrence: None)
  Receive Date: 20061024
  Receipt Date: 20061006
  Transmission Date: 20070319
  Serious: Yes (Other)
  Sender: FDA-Public Use
  Company Number: DE200610002236

PATIENT
  Age: 32 Year
  Sex: Female

DRUGS (5)
  1. FORTEO [Suspect]
     Dosage: 20 SUBCUTANEOUS
     Route: 058
  2. FORTEO [Concomitant]
  3. DEKRISTOL (COLECALCIFEROL) [Concomitant]
  4. CALCIUM CARBONATE [Concomitant]
  5. ARCOXIA [Concomitant]

REACTIONS (2)
  - FOCAL NODULAR HYPERPLASIA [None]
  - GASTROINTESTINAL DISORDER [None]
